FAERS Safety Report 8336409-3 (Version None)
Quarter: 2012Q2

REPORT INFORMATION
  Report Type: 
  Country: None (occurrence: None)
  Receive Date: 20120501
  Receipt Date: 20120419
  Transmission Date: 20120825
  Serious: Yes (Hospitalization)
  Sender: FDA-Public Use
  Company Number: WAES 1203USA03976

PATIENT
  Age: 15 Year
  Sex: Female
  Weight: 45.8133 kg

DRUGS (18)
  1. LYCOPENE [Concomitant]
  2. RIDAFOROLIMUS [Concomitant]
  3. TURMERIC [Concomitant]
  4. BROCCOLI (+) CARROT [Concomitant]
  5. CYCLIZINE [Concomitant]
  6. MANUKA HONEY [Concomitant]
  7. DEXAMETHASONE [Concomitant]
  8. BLACK CURRANT (+) TEA [Concomitant]
  9. LANSOPRAZOLE [Concomitant]
  10. RADIANCE [Concomitant]
  11. BACLOFEN [Concomitant]
  12. SELENIUM (UNSPECIFIED) [Concomitant]
  13. DECADRON [Suspect]
     Indication: INTRACRANIAL PRESSURE INCREASED
     Dosage: 6 MG/BID/PO 4 MG/BID/PO 3 MG/BID/PO
     Route: 048
     Dates: start: 20120324, end: 20120326
  14. DECADRON [Suspect]
     Indication: INTRACRANIAL PRESSURE INCREASED
     Dosage: 6 MG/BID/PO 4 MG/BID/PO 3 MG/BID/PO
     Route: 048
     Dates: start: 20120326, end: 20120327
  15. DECADRON [Suspect]
     Indication: INTRACRANIAL PRESSURE INCREASED
     Dosage: 6 MG/BID/PO 4 MG/BID/PO 3 MG/BID/PO
     Route: 048
     Dates: start: 20120328, end: 20120328
  16. KEPPRA [Concomitant]
  17. MORPHINE SULFATE [Concomitant]
  18. PHOTINIA PYRIFOLIA [Concomitant]

REACTIONS (6)
  - BLOOD SELENIUM INCREASED [None]
  - ORAL HERPES [None]
  - PARTIAL SEIZURES [None]
  - FATIGUE [None]
  - ALANINE AMINOTRANSFERASE INCREASED [None]
  - ASPARTATE AMINOTRANSFERASE INCREASED [None]
